FAERS Safety Report 20205445 (Version 1)
Quarter: 2021Q4

REPORT INFORMATION
  Report Type: Report from Study
  Country: US (occurrence: US)
  Receive Date: 20211220
  Receipt Date: 20211220
  Transmission Date: 20220303
  Serious: Yes (Hospitalization)
  Sender: FDA-Public Use
  Company Number: US-BRISTOL-MYERS SQUIBB COMPANY-BMS-2021-129948

PATIENT
  Age: 74 Year
  Sex: Male
  Weight: 62.9 kg

DRUGS (6)
  1. NIVOLUMAB [Suspect]
     Active Substance: NIVOLUMAB
     Indication: Rectosigmoid cancer metastatic
     Dosage: 480 MILLIGRAM, Q4WK
     Route: 065
     Dates: start: 20201109
  2. ENCORAFENIB [Suspect]
     Active Substance: ENCORAFENIB
     Indication: Rectosigmoid cancer metastatic
     Dosage: 300 MILLIGRAM, QD
     Route: 065
     Dates: start: 20201109
  3. BINIMETINIB [Suspect]
     Active Substance: BINIMETINIB
     Indication: Rectosigmoid cancer metastatic
     Dosage: 45 MILLIGRAM, BID, 12 HOURS APART
     Route: 065
     Dates: start: 20201109
  4. OMEPRAZOLE [Concomitant]
     Active Substance: OMEPRAZOLE
     Indication: Product used for unknown indication
     Dosage: 40 MILLIGRAM, Q12H
     Route: 042
  5. VITAMIN C [Concomitant]
     Active Substance: ASCORBIC ACID
     Indication: Supplementation therapy
     Dosage: UNK
     Route: 065
     Dates: start: 20211108
  6. LEVOTHYROXINE [Concomitant]
     Active Substance: LEVOTHYROXINE
     Indication: Hypothyroidism
     Dosage: UNK
     Route: 065
     Dates: start: 20210511

REACTIONS (2)
  - Anaemia [Recovering/Resolving]
  - Gastrointestinal ulcer [Recovering/Resolving]

NARRATIVE: CASE EVENT DATE: 20211124
